FAERS Safety Report 8559915-5 (Version None)
Quarter: 2012Q3

REPORT INFORMATION
  Report Type: 
  Country: None (occurrence: None)
  Receive Date: 20120802
  Receipt Date: 20120727
  Transmission Date: 20120928
  Serious: No
  Sender: FDA-Public Use
  Company Number: PHHY2012CA061990

PATIENT
  Sex: Male

DRUGS (3)
  1. HYDROXYUREA [Concomitant]
  2. TASIGNA [Suspect]
     Indication: CHRONIC MYELOID LEUKAEMIA
     Dosage: 300 MG, BID
     Route: 048
     Dates: start: 20120523, end: 20120528
  3. ATENOLOL [Concomitant]
     Indication: HYPERTENSION

REACTIONS (4)
  - INCORRECT DOSE ADMINISTERED [None]
  - MYALGIA [None]
  - PANCREATIC ENZYMES INCREASED [None]
  - RASH [None]
